FAERS Safety Report 19885416 (Version 1)
Quarter: 2021Q3

REPORT INFORMATION
  Report Type: Spontaneous
  Country: US (occurrence: US)
  Receive Date: 20210927
  Receipt Date: 20210927
  Transmission Date: 20211014
  Serious: Yes (Hospitalization, Other)
  Sender: FDA-Public Use
  Company Number: US-BRISTOL-MYERS SQUIBB COMPANY-BMS-2021-093276

PATIENT
  Age: 79 Year
  Sex: Female

DRUGS (5)
  1. SPRYCEL [Suspect]
     Active Substance: DASATINIB
     Indication: LEUKAEMIA
     Dosage: 100 MILLIGRAM, QD
     Route: 065
     Dates: start: 201409, end: 201901
  2. SPRYCEL [Suspect]
     Active Substance: DASATINIB
     Dosage: 20 MILLIGRAM, QD
     Route: 065
     Dates: start: 20200331, end: 202012
  3. SPRYCEL [Suspect]
     Active Substance: DASATINIB
     Dosage: 50 MILLIGRAM, QD
     Route: 065
     Dates: start: 201904
  4. SPRYCEL [Suspect]
     Active Substance: DASATINIB
     Dosage: 40 MILLIGRAM, QD
     Route: 065
     Dates: start: 201910, end: 202002
  5. SPRYCEL [Suspect]
     Active Substance: DASATINIB
     Dosage: 20 MILLIGRAM, QD
     Route: 065
     Dates: start: 202105

REACTIONS (4)
  - Acute myocardial infarction [Unknown]
  - Pleural effusion [Unknown]
  - Stress cardiomyopathy [Unknown]
  - Pulmonary arterial hypertension [Unknown]

NARRATIVE: CASE EVENT DATE: 201811
